FAERS Safety Report 20442119 (Version 1)
Quarter: 2022Q1

REPORT INFORMATION
  Report Type: Report from Study
  Country: AU (occurrence: AU)
  Receive Date: 20220208
  Receipt Date: 20220208
  Transmission Date: 20220423
  Serious: Yes (Other)
  Sender: FDA-Public Use
  Company Number: AU-BRISTOL-MYERS SQUIBB COMPANY-BMS-2022-017486

PATIENT
  Age: 33 Year
  Sex: Male
  Weight: 66.6 kg

DRUGS (9)
  1. BELATACEPT [Suspect]
     Active Substance: BELATACEPT
     Indication: Prophylaxis
     Dosage: 325 MILLIGRAM, QMO
     Route: 042
     Dates: start: 20200709
  2. SIROLIMUS [Suspect]
     Active Substance: SIROLIMUS
     Indication: Prophylaxis
     Dosage: 3 MILLIGRAM, QD
     Route: 048
     Dates: start: 20200709
  3. LEVEMIR [Concomitant]
     Active Substance: INSULIN DETEMIR
     Indication: Type 1 diabetes mellitus
     Dosage: 8 UNIT
     Route: 058
  4. PANTOPRAZOLE [Concomitant]
     Active Substance: PANTOPRAZOLE
     Indication: Product used for unknown indication
     Dosage: 40 MILLIGRAM
     Route: 048
  5. BACTRIM [Concomitant]
     Active Substance: SULFAMETHOXAZOLE\TRIMETHOPRIM
     Indication: Product used for unknown indication
     Dosage: 0.5 TAB, QD
     Route: 065
  6. VALGANCICLOVIR [Concomitant]
     Active Substance: VALGANCICLOVIR
     Indication: Product used for unknown indication
     Dosage: 450 MILLIGRAM X2
     Route: 065
  7. METFORMIN [Concomitant]
     Active Substance: METFORMIN HYDROCHLORIDE
     Indication: Product used for unknown indication
     Dosage: 500 MILLIGRAM X2, QD
     Route: 048
  8. SITAGLIPTIN [Concomitant]
     Active Substance: SITAGLIPTIN
     Indication: Product used for unknown indication
     Dosage: 100 MILLIGRAM, QD
     Route: 048
  9. PFIZER-BIONTECH COVID-19 VACCINE [Concomitant]
     Active Substance: TOZINAMERAN
     Indication: COVID-19
     Dosage: 2 DOSES
     Route: 065

REACTIONS (1)
  - Foot fracture [Recovered/Resolved]

NARRATIVE: CASE EVENT DATE: 20210607
